FAERS Safety Report 5932324-0 (Version None)
Quarter: 2008Q4

REPORT INFORMATION
  Report Type: 
  Country: None (occurrence: None)
  Receive Date: 20081027
  Receipt Date: 20081027
  Transmission Date: 20090506
  Serious: Yes (Other)
  Sender: FDA-Public Use
  Company Number: None

PATIENT
  Age: 42 Year
  Sex: Female
  Weight: 82.1011 kg

DRUGS (2)
  1. BUPROPION HCL [Suspect]
     Indication: ANXIETY
     Dosage: 300MG  1 A DAY
  2. BUPROPION HCL [Suspect]
     Indication: DEPRESSION
     Dosage: 300MG  1 A DAY

REACTIONS (5)
  - IRRITABILITY [None]
  - MALAISE [None]
  - MIGRAINE [None]
  - NAUSEA [None]
  - PRODUCT QUALITY ISSUE [None]
